FAERS Safety Report 5406268-7 (Version None)
Quarter: 2007Q3

REPORT INFORMATION
  Report Type: 
  Country: None (occurrence: None)
  Receive Date: 20070806
  Receipt Date: 20070724
  Transmission Date: 20080115
  Serious: Yes (Other)
  Sender: FDA-Public Use
  Company Number: FR-JNJFOC-20061200159

PATIENT
  Sex: Female
  Weight: 62 kg

DRUGS (7)
  1. DURAGESIC-100 [Suspect]
     Route: 062
  2. DURAGESIC-100 [Suspect]
     Indication: ANKYLOSING SPONDYLITIS
     Route: 062
  3. ZELITREX [Concomitant]
     Indication: ORAL HERPES
     Route: 065
  4. LAROXYL [Concomitant]
     Indication: PAIN
     Route: 065
  5. CORTANCYL [Concomitant]
     Indication: PAIN
     Route: 065
  6. OXYCODONE HCL [Concomitant]
     Route: 065
  7. LEVOTHYROXINE SODIUM [Concomitant]
     Indication: HYPOTHYROIDISM
     Route: 065

REACTIONS (1)
  - DRUG EXPOSURE DURING PREGNANCY [None]
